FAERS Safety Report 7452451-9 (Version None)
Quarter: 2011Q2

REPORT INFORMATION
  Report Type: 
  Country: None (occurrence: None)
  Receive Date: 20110502
  Receipt Date: 20100929
  Transmission Date: 20111010
  Serious: No
  Sender: FDA-Public Use
  Company Number: US-ASTRAZENECA-2010SE45999

PATIENT
  Age: 79 Year
  Sex: Female
  Weight: 48.1 kg

DRUGS (3)
  1. CORGARD [Concomitant]
  2. NEXIUM [Suspect]
     Indication: GASTROOESOPHAGEAL REFLUX DISEASE
     Route: 048
     Dates: start: 20100101
  3. NORPACE [Concomitant]

REACTIONS (3)
  - LARYNGITIS [None]
  - DYSPNOEA [None]
  - THROAT IRRITATION [None]
